FAERS Safety Report 8251231-4 (Version None)
Quarter: 2012Q2

REPORT INFORMATION
  Report Type: 
  Country: None (occurrence: None)
  Receive Date: 20120402
  Receipt Date: 20120323
  Transmission Date: 20120825
  Serious: Yes (Other)
  Sender: FDA-Public Use
  Company Number: CA-JNJFOC-20111208598

PATIENT
  Sex: Male
  Weight: 90 kg

DRUGS (2)
  1. REMICADE [Suspect]
     Indication: CROHN'S DISEASE
     Dosage: PT HAS HAD 6 INFUSIONS
     Route: 042
  2. REMICADE [Suspect]
     Dosage: 10 INFUSIONS
     Route: 042
     Dates: start: 20111201

REACTIONS (6)
  - CROHN'S DISEASE [None]
  - DECREASED APPETITE [None]
  - HEPATIC STEATOSIS [None]
  - HEPATIC FIBROSIS [None]
  - ABNORMAL LOSS OF WEIGHT [None]
  - ALANINE AMINOTRANSFERASE INCREASED [None]
